FAERS Safety Report 4305918-6 (Version None)
Quarter: 2004Q1

REPORT INFORMATION
  Report Type: 
  Country: None (occurrence: None)
  Receive Date: 20040226
  Receipt Date: 19981208
  Transmission Date: 20041129
  Serious: Yes (Other)
  Sender: FDA-Public Use
  Company Number: KII-1998-0006310

PATIENT
  Sex: Male

DRUGS (1)
  1. OXYCONTIN [Suspect]
     Indication: PAIN
     Dosage: 80 MG, Q12H, UNKNOWN

REACTIONS (3)
  - DRUG DEPENDENCE [None]
  - PANCREATITIS [None]
  - SMALL INTESTINAL OBSTRUCTION [None]
